FAERS Safety Report 7224515-6 (Version None)
Quarter: 2011Q1

REPORT INFORMATION
  Report Type: 
  Country: None (occurrence: None)
  Receive Date: 20110106
  Receipt Date: 20110106
  Transmission Date: 20110831
  Serious: Yes (Other)
  Sender: FDA-Public Use
  Company Number: None

PATIENT
  Age: 58 Year
  Sex: Female
  Weight: 53.5244 kg

DRUGS (1)
  1. DARVOCET-N 100 [Suspect]
     Indication: ARTHRALGIA
     Dosage: 1 TABLET 3 TIMES DAY
     Dates: start: 20100420, end: 20101101

REACTIONS (2)
  - SYNCOPE [None]
  - PALPITATIONS [None]
